FAERS Safety Report 19472216 (Version 1)
Quarter: 2021Q2

REPORT INFORMATION
  Report Type: Other
  Country: GB (occurrence: GB)
  Receive Date: 20210629
  Receipt Date: 20210629
  Transmission Date: 20210717
  Serious: Yes (Hospitalization, Other)
  Sender: FDA-Public Use
  Company Number: GB-DEXPHARM-20210941

PATIENT
  Age: 78 Year
  Sex: Male

DRUGS (4)
  1. BISOPROLOL [Concomitant]
     Active Substance: BISOPROLOL
     Indication: ANGINA PECTORIS
  2. GLYCERYL TRINITRATE [Concomitant]
     Active Substance: NITROGLYCERIN
     Indication: ANGINA PECTORIS
  3. DONEPEZIL. [Suspect]
     Active Substance: DONEPEZIL
  4. ATORVASTATIN [Concomitant]
     Active Substance: ATORVASTATIN
     Indication: ANGINA PECTORIS

REACTIONS (5)
  - Abdominal pain [Unknown]
  - Atrial fibrillation [Recovered/Resolved]
  - Syncope [Unknown]
  - Delirium [Recovered/Resolved]
  - Abdominal pain upper [Unknown]
